FAERS Safety Report 8029462-8 (Version None)
Quarter: 2012Q1

REPORT INFORMATION
  Report Type: 
  Country: None (occurrence: None)
  Receive Date: 20120108
  Receipt Date: 20111228
  Transmission Date: 20120608
  Serious: Yes (Life-Threatening, Hospitalization)
  Sender: FDA-Public Use
  Company Number: JP-AMGEN-JPNCT2010008250

PATIENT
  Age: 41 Year
  Sex: Female
  Weight: 45 kg

DRUGS (19)
  1. CORTICOSTEROIDS [Concomitant]
     Indication: PROPHYLAXIS
     Route: 065
  2. MAGNESIUM SULFATE [Concomitant]
     Dosage: 2 UNK, UNK
     Route: 042
  3. ALOXI [Concomitant]
     Route: 042
  4. GLYCYRON [Concomitant]
     Route: 048
  5. PANITUMUMAB [Suspect]
     Indication: COLORECTAL CANCER
  6. IRINOTECAN HYDROCHLORIDE [Suspect]
     Indication: COLORECTAL CANCER
     Dosage: 150 MG/M2, Q2WK
     Route: 041
     Dates: start: 20101104, end: 20101216
  7. TALION [Concomitant]
     Route: 048
  8. SODIUM BICARBONATE [Concomitant]
     Route: 049
  9. URSO 250 [Concomitant]
     Route: 048
  10. EMEND [Concomitant]
     Route: 048
  11. LEVOLEUCOVORIN CALCIUM [Suspect]
     Indication: COLORECTAL CANCER
     Dosage: 200 MG/M2, Q2WK
     Route: 041
     Dates: start: 20101104, end: 20101216
  12. DEXAMETHASONE SODIUM PHOSPHATE [Concomitant]
  13. MINOCYCLINE HCL [Concomitant]
     Route: 048
  14. ELENTAL [Concomitant]
     Route: 048
  15. GASLON [Concomitant]
     Indication: STOMATITIS
     Route: 048
  16. FLUOROURACIL [Suspect]
     Indication: COLORECTAL CANCER
     Route: 041
     Dates: start: 20101104, end: 20101216
  17. DIFLAL [Concomitant]
     Route: 062
  18. RABEPRAZOLE SODIUM [Concomitant]
     Route: 048
  19. ANTIHISTAMINES [Concomitant]
     Indication: PROPHYLAXIS
     Route: 065

REACTIONS (6)
  - HYPOMAGNESAEMIA [None]
  - DRY SKIN [None]
  - STOMATITIS [None]
  - ELECTROCARDIOGRAM QT PROLONGED [None]
  - HYPOCALCAEMIA [None]
  - SKIN FISSURES [None]
